FAERS Safety Report 15326309 (Version 1)
Quarter: 2018Q3

REPORT INFORMATION
  Report Type: Spontaneous
  Country: US (occurrence: US)
  Receive Date: 20180828
  Receipt Date: 20180828
  Transmission Date: 20181010
  Serious: No
  Sender: FDA-Public Use
  Company Number: US-SA-2018SA228710

PATIENT

DRUGS (1)
  1. XYZAL ALLERGY 24HR [Suspect]
     Active Substance: LEVOCETIRIZINE DIHYDROCHLORIDE
     Indication: HYPERSENSITIVITY
     Route: 065

REACTIONS (12)
  - Depression [Unknown]
  - Aggression [Unknown]
  - Ear pain [Unknown]
  - Dysuria [Unknown]
  - Decreased appetite [Unknown]
  - Dizziness [Unknown]
  - Epistaxis [Unknown]
  - Hypoaesthesia oral [Unknown]
  - Abdominal pain upper [Unknown]
  - Agitation [Unknown]
  - Hallucination [Unknown]
  - Pyrexia [Unknown]
